FAERS Safety Report 7018441-5 (Version None)
Quarter: 2010Q3

REPORT INFORMATION
  Report Type: 
  Country: None (occurrence: None)
  Receive Date: 20100923
  Receipt Date: 20100908
  Transmission Date: 20110219
  Serious: Yes (Death)
  Sender: FDA-Public Use
  Company Number: 010963

PATIENT
  Age: 54 Year
  Sex: Male

DRUGS (4)
  1. PLETAL [Suspect]
     Indication: THROMBOSIS
     Dosage: 100 MG, BID, ORAL
     Route: 048
     Dates: start: 20080701
  2. ASPIRIN [Suspect]
     Dosage: 100 MG, QD
     Dates: start: 20030101
  3. CLOPIDOGREL [Suspect]
     Dosage: 75 MG, QD
     Dates: start: 20030101
  4. WARFARIN SODIUM [Suspect]
     Dates: start: 20080801

REACTIONS (10)
  - ANGINA UNSTABLE [None]
  - CHEST PAIN [None]
  - DISSEMINATED INTRAVASCULAR COAGULATION [None]
  - FLANK PAIN [None]
  - HAEMATOCRIT DECREASED [None]
  - METABOLIC ACIDOSIS [None]
  - MULTI-ORGAN FAILURE [None]
  - RENAL HAEMORRHAGE [None]
  - THROMBOSIS IN DEVICE [None]
  - TREATMENT FAILURE [None]
